FAERS Safety Report 6471197-7 (Version None)
Quarter: 2009Q4

REPORT INFORMATION
  Report Type: 
  Country: None (occurrence: None)
  Receive Date: 20091203
  Receipt Date: 20080206
  Transmission Date: 20100525
  Serious: Yes (Hospitalization)
  Sender: FDA-Public Use
  Company Number: TR-ELI_LILLY_AND_COMPANY-TR200802003455

PATIENT
  Age: 65 Year
  Sex: Female
  Weight: 65 kg

DRUGS (2)
  1. HUMALOG MIX 50/50 [Suspect]
     Indication: TYPE 2 DIABETES MELLITUS
  2. ANTI-ASTHMATICS [Concomitant]
     Indication: ASTHMA
     Dosage: UNK, EACH NIGHT
     Route: 065

REACTIONS (2)
  - BLOOD GLUCOSE INCREASED [None]
  - HIP ARTHROPLASTY [None]
